FAERS Safety Report 22523384 (Version 2)
Quarter: 2025Q4

REPORT INFORMATION
  Report Type: Report from Study
  Country: US (occurrence: US)
  Receive Date: 20230606
  Receipt Date: 20251128
  Transmission Date: 20260117
  Serious: Yes (Hospitalization, Other)
  Sender: TAKEDA
  Company Number: US-TAKEDA-US201808398

PATIENT
  Age: 36 Year
  Sex: Female
  Weight: 54 kg

DRUGS (12)
  1. TEDUGLUTIDE [Suspect]
     Active Substance: TEDUGLUTIDE
     Indication: Short-bowel syndrome
     Dosage: 2.49 MILLIGRAM, QD
     Dates: start: 20160705, end: 20160804
  2. TEDUGLUTIDE [Suspect]
     Active Substance: TEDUGLUTIDE
     Dosage: 0.228 MILLIGRAM, QD
     Dates: start: 20160808, end: 20170627
  3. TEDUGLUTIDE [Suspect]
     Active Substance: TEDUGLUTIDE
  4. TEDUGLUTIDE [Suspect]
     Active Substance: TEDUGLUTIDE
  5. HYCET [Concomitant]
     Active Substance: ACETAMINOPHEN\HYDROCODONE BITARTRATE
     Indication: Short-bowel syndrome
     Dosage: UNK
  6. LOMOTIL [Concomitant]
     Active Substance: ATROPINE SULFATE\DIPHENOXYLATE HYDROCHLORIDE
     Indication: Gastrointestinal stoma complication
     Dosage: 10 MILLILITER, QID
     Dates: start: 20160812, end: 20170403
  7. IMODIUM [Concomitant]
     Active Substance: LOPERAMIDE HYDROCHLORIDE
     Indication: Short-bowel syndrome
     Dosage: 4 MILLIGRAM, QID
     Dates: start: 20160707
  8. SYNTHROID [Concomitant]
     Active Substance: LEVOTHYROXINE SODIUM
     Indication: Hypoparathyroidism
     Dosage: 25 MICROGRAM, QD
     Dates: start: 20160715
  9. BACTROBAN [Concomitant]
     Active Substance: MUPIROCIN CALCIUM
     Indication: Subcutaneous abscess
     Dosage: UNK UNK, BID
     Dates: start: 20180703
  10. CUTIVATE [Concomitant]
     Active Substance: FLUTICASONE PROPIONATE
     Indication: Subcutaneous abscess
     Dosage: UNK UNK, BID
     Dates: start: 20180703
  11. ELIDEL [Concomitant]
     Active Substance: PIMECROLIMUS
     Indication: Subcutaneous abscess
     Dosage: UNK UNK, BID
     Dates: start: 20180703
  12. KLOR-CON [Concomitant]
     Active Substance: POTASSIUM CHLORIDE
     Indication: Electrolyte substitution therapy
     Dosage: UNK UNK, QD
     Dates: start: 20171103, end: 20180515

REACTIONS (1)
  - Sepsis [Recovered/Resolved]

NARRATIVE: CASE EVENT DATE: 20161006
